FAERS Safety Report 25922498 (Version 1)
Quarter: 2025Q4

REPORT INFORMATION
  Report Type: Spontaneous
  Country: US (occurrence: US)
  Receive Date: 20251015
  Receipt Date: 20251015
  Transmission Date: 20260117
  Serious: Yes (Other)
  Sender: SANDOZ
  Company Number: US-002147023-NVSC2024US100673

PATIENT
  Sex: Female

DRUGS (8)
  1. DIPHENHYDRAMINE [Suspect]
     Active Substance: DIPHENHYDRAMINE
     Indication: Trichophytosis
     Dosage: UNK
     Route: 065
  2. ECONAZOLE [Suspect]
     Active Substance: ECONAZOLE
     Indication: Trichophytosis
     Dosage: UNK
     Route: 061
  3. FLUCONAZOLE [Suspect]
     Active Substance: FLUCONAZOLE
     Indication: Product used for unknown indication
     Dosage: 150 MG, QW
     Route: 065
  4. FLUCONAZOLE [Suspect]
     Active Substance: FLUCONAZOLE
     Dosage: 200 MG, QD
     Route: 065
  5. KETOCONAZOLE [Suspect]
     Active Substance: KETOCONAZOLE
     Indication: Trichophytosis
     Dosage: UNK
     Route: 061
     Dates: start: 2022
  6. MOMETASONE [Suspect]
     Active Substance: MOMETASONE
     Indication: Dermatitis contact
     Dosage: 0.1 %
     Route: 061
  7. PREDNISONE [Suspect]
     Active Substance: PREDNISONE
     Indication: Dermatitis contact
     Dosage: UNK, TAPER PACK
     Route: 065
     Dates: start: 2022
  8. TERBINAFINE [Suspect]
     Active Substance: TERBINAFINE
     Indication: Trichophytosis
     Dosage: 250 MG, QD
     Route: 065

REACTIONS (2)
  - Condition aggravated [Recovered/Resolved]
  - Drug ineffective [Unknown]
